FAERS Safety Report 9425829 (Version 1)
Quarter: 2013Q3

REPORT INFORMATION
  Report Type: Spontaneous
  Country: PT (occurrence: PT)
  Receive Date: 20130729
  Receipt Date: 20130729
  Transmission Date: 20140515
  Serious: Yes (Other)
  Sender: FDA-Public Use
  Company Number: PT-ACTAVIS-2013-13296

PATIENT
  Age: 47 Year
  Sex: Female

DRUGS (4)
  1. DOCETAXEL (UNKNOWN) [Suspect]
     Indication: BREAST CANCER
     Dosage: 135 MG, EVERY THREE WEEKS
     Route: 042
     Dates: start: 201305, end: 20130702
  2. ORADEXON                           /00016001/ [Concomitant]
     Indication: PREMEDICATION
     Dosage: 20 MG, UNK
     Dates: start: 201303, end: 20130702
  3. TAVIST                             /00137202/ [Concomitant]
     Indication: PREMEDICATION
     Dosage: 2 MG, UNK
     Route: 065
     Dates: start: 20130702, end: 20130702
  4. DEXAMETASONA                       /00016001/ [Concomitant]
     Indication: PREMEDICATION
     Dosage: 1 DF, UNK
     Route: 065
     Dates: start: 20130701, end: 20130703

REACTIONS (5)
  - Throat tightness [Recovered/Resolved]
  - Product quality issue [Recovered/Resolved]
  - Erythema [Recovered/Resolved]
  - Dyspnoea [Recovered/Resolved]
  - Back pain [Recovered/Resolved]
